FAERS Safety Report 19215964 (Version 3)
Quarter: 2021Q2

REPORT INFORMATION
  Report Type: Spontaneous
  Country: US (occurrence: US)
  Receive Date: 20210505
  Receipt Date: 20210601
  Transmission Date: 20210717
  Serious: Yes (Other)
  Sender: FDA-Public Use
  Company Number: US-BAYER-2021-132783

PATIENT
  Age: 39 Year
  Sex: Female

DRUGS (1)
  1. MIRENA [Suspect]
     Active Substance: LEVONORGESTREL
     Indication: CONTRACEPTION
     Dosage: 20 ?G PER DAY,CONTINUOUSLY
     Route: 015
     Dates: start: 20150501, end: 20210402

REACTIONS (6)
  - Device breakage [Recovered/Resolved]
  - Complication of device removal [None]
  - Device difficult to use [None]
  - Embedded device [Recovered/Resolved]
  - Device expulsion [Recovered/Resolved]
  - Device physical property issue [None]

NARRATIVE: CASE EVENT DATE: 20210402
